FAERS Safety Report 19270831 (Version 1)
Quarter: 2021Q2

REPORT INFORMATION
  Report Type: Spontaneous
  Country: US (occurrence: US)
  Receive Date: 20210518
  Receipt Date: 20210518
  Transmission Date: 20210717
  Serious: No
  Sender: FDA-Public Use
  Company Number: US-SA-2021SA155880

PATIENT
  Sex: Female

DRUGS (1)
  1. MULTAQ [Suspect]
     Active Substance: DRONEDARONE
     Indication: ATRIAL FIBRILLATION
     Dosage: 400 MG, BID
     Dates: start: 20210502, end: 20210503

REACTIONS (13)
  - Muscle tightness [Unknown]
  - Dizziness [Unknown]
  - Dyspnoea [Unknown]
  - Drug hypersensitivity [Unknown]
  - Visual impairment [Unknown]
  - Cough [Unknown]
  - Peripheral swelling [Unknown]
  - Thinking abnormal [Unknown]
  - Heart rate irregular [Unknown]
  - Drug ineffective [Unknown]
  - Pruritus [Unknown]
  - Skin discolouration [Unknown]
  - Insomnia [Unknown]

NARRATIVE: CASE EVENT DATE: 20210502
